FAERS Safety Report 25578303 (Version 1)
Quarter: 2025Q3

REPORT INFORMATION
  Report Type: Spontaneous
  Country: TH (occurrence: TH)
  Receive Date: 20250718
  Receipt Date: 20250718
  Transmission Date: 20251021
  Serious: Yes (Death)
  Sender: MERCK SHARP & DOHME LLC
  Company Number: TH-009507513-2309923

PATIENT
  Age: 70 Year
  Sex: Male

DRUGS (7)
  1. PEMBROLIZUMAB [Suspect]
     Active Substance: PEMBROLIZUMAB
     Indication: Lung squamous cell carcinoma stage IV
     Dosage: CARBOPLATIN, PACLITAXEL, AND PEMBROLIZUMAB 200 MG X 4 CYCLES
     Dates: start: 20210714, end: 2021
  2. PEMBROLIZUMAB [Suspect]
     Active Substance: PEMBROLIZUMAB
     Indication: Lung squamous cell carcinoma stage IV
     Dosage: PEMBROLIZUMAB 200 MG TOTAL 24 CYCLES
     Dates: start: 2021, end: 20230209
  3. CARBOPLATIN [Suspect]
     Active Substance: CARBOPLATIN
     Indication: Lung squamous cell carcinoma stage IV
     Dates: start: 20210714, end: 2021
  4. PACLITAXEL [Suspect]
     Active Substance: PACLITAXEL
     Indication: Lung squamous cell carcinoma stage IV
     Dates: start: 20210714, end: 2021
  5. GEMCITABINE [Suspect]
     Active Substance: GEMCITABINE
     Indication: Lung squamous cell carcinoma stage IV
     Dates: start: 20231012, end: 2023
  6. RAMUCIRUMAB [Suspect]
     Active Substance: RAMUCIRUMAB
     Indication: Lung squamous cell carcinoma stage IV
     Dates: start: 20230302, end: 202310
  7. DOCETAXEL [Suspect]
     Active Substance: DOCETAXEL
     Indication: Lung squamous cell carcinoma stage IV
     Dates: start: 20230302, end: 202310

REACTIONS (5)
  - Malignant neoplasm progression [Fatal]
  - Therapy partial responder [Unknown]
  - Nausea [Unknown]
  - Hiccups [Unknown]
  - Folliculitis [Unknown]

NARRATIVE: CASE EVENT DATE: 20210101
